FAERS Safety Report 7307446-2 (Version None)
Quarter: 2011Q1

REPORT INFORMATION
  Report Type: 
  Country: None (occurrence: None)
  Receive Date: 20110119
  Receipt Date: 20101228
  Transmission Date: 20110831
  Serious: Yes (Other)
  Sender: FDA-Public Use
  Company Number: A-US2010-41647

PATIENT
  Age: 43 Year
  Sex: Female

DRUGS (1)
  1. TRACLEER [Suspect]
     Indication: PULMONARY ARTERIAL HYPERTENSION
     Dosage: ORAL
     Route: 048
     Dates: start: 20100113

REACTIONS (6)
  - PAIN [None]
  - PNEUMONIA [None]
  - INCREASED UPPER AIRWAY SECRETION [None]
  - OXYGEN SATURATION DECREASED [None]
  - COUGH [None]
  - LOWER RESPIRATORY TRACT INFECTION [None]
